FAERS Safety Report 23322794 (Version 2)
Quarter: 2024Q1

REPORT INFORMATION
  Report Type: Spontaneous
  Country: US (occurrence: US)
  Receive Date: 20231220
  Receipt Date: 20240326
  Transmission Date: 20240410
  Serious: Yes (Other)
  Sender: FDA-Public Use
  Company Number: US-AMGEN-USASP2023223407

PATIENT

DRUGS (1)
  1. BEVACIZUMAB [Suspect]
     Active Substance: BEVACIZUMAB
     Indication: Paraneoplastic retinopathy
     Dosage: UNK
     Route: 065

REACTIONS (4)
  - Idiopathic intracranial hypertension [Unknown]
  - Central nervous system vasculitis [Unknown]
  - Primary progressive multiple sclerosis [Unknown]
  - Off label use [Unknown]
